FAERS Safety Report 9536655 (Version 1)
Quarter: 2013Q3

REPORT INFORMATION
  Report Type: Spontaneous
  Country: US (occurrence: US)
  Receive Date: 20130919
  Receipt Date: 20130919
  Transmission Date: 20140515
  Serious: No
  Sender: FDA-Public Use
  Company Number: US-009507513-1309USA007596

PATIENT
  Age: 53 Year
  Sex: Female

DRUGS (1)
  1. JANUMET XR [Suspect]
     Indication: DIABETES MELLITUS
     Dosage: ONE JANUMET XR TABLET 100/1000MG ONCE DAILY
     Route: 048
     Dates: start: 201205, end: 20130316

REACTIONS (1)
  - Diarrhoea [Recovered/Resolved]
